FAERS Safety Report 10253446 (Version 1)
Quarter: 2014Q2

REPORT INFORMATION
  Report Type: Spontaneous
  Country: BR (occurrence: BR)
  Receive Date: 20140623
  Receipt Date: 20140623
  Transmission Date: 20141212
  Serious: Yes (Hospitalization, Other)
  Sender: FDA-Public Use
  Company Number: BR-ELI_LILLY_AND_COMPANY-BR201406004749

PATIENT
  Sex: Male
  Weight: 63 kg

DRUGS (16)
  1. HUMULIN N [Suspect]
     Indication: DIABETES MELLITUS
     Dosage: 18 IU, EACH MORNING
     Route: 058
  2. HUMULIN N [Suspect]
     Dosage: 4 IU, PRN
     Route: 058
  3. CARVEDILOL [Concomitant]
     Dosage: 12.5 MG, EACH MORNING
     Route: 065
  4. CARVEDILOL [Concomitant]
     Dosage: 12.5 MG, EACH EVENING
     Route: 065
  5. ISOSORBIDE [Concomitant]
     Indication: ANGINA PECTORIS
     Dosage: UNK UNK, UNKNOWN
     Route: 065
  6. LOSARTAN [Concomitant]
     Indication: BLOOD CHOLESTEROL
     Dosage: 50 MG, EACH MORNING
     Route: 065
  7. LOSARTAN [Concomitant]
     Dosage: 50 MG, EACH EVENING
     Route: 065
  8. FUROSEMIDE [Concomitant]
     Indication: BLOOD PRESSURE
     Dosage: 40 MG, QD
     Route: 065
  9. SOMALGIN [Concomitant]
     Indication: PLATELET AGGREGATION
     Dosage: 200 MG, QD
     Route: 065
  10. SINVASTATINA [Concomitant]
     Indication: CAROTID ARTERY OCCLUSION
     Dosage: UNK UNK, UNKNOWN
     Route: 065
  11. CILOSTAZOL [Concomitant]
     Indication: PARKINSON^S DISEASE
     Dosage: 125 MG, OTHER
     Route: 065
  12. ESCITALOPRAM [Concomitant]
     Indication: DEPRESSION
     Dosage: UNK UNK, UNKNOWN
     Route: 065
  13. DOMPERIDONA [Concomitant]
     Indication: REFLUX GASTRITIS
     Dosage: UNK UNK, UNKNOWN
     Route: 065
  14. PANTOPRAZOL [Concomitant]
     Dosage: UNK UNK, UNKNOWN
     Route: 065
  15. DIGESAN [Concomitant]
     Dosage: UNK UNK, UNKNOWN
     Route: 065
  16. PROLOPA [Concomitant]
     Indication: PARKINSON^S DISEASE
     Dosage: 125 MG, OTHER
     Route: 065

REACTIONS (14)
  - Renal failure [Recovered/Resolved]
  - Hypotension [Recovered/Resolved]
  - Intervertebral disc protrusion [Recovered/Resolved with Sequelae]
  - Carotid artery occlusion [Unknown]
  - Parkinson^s disease [Recovered/Resolved]
  - Urinary retention [Recovered/Resolved]
  - Ejection fraction decreased [Recovered/Resolved]
  - Blood glucose increased [Recovering/Resolving]
  - Malnutrition [Recovered/Resolved]
  - Depressive symptom [Unknown]
  - Functional gastrointestinal disorder [Recovered/Resolved]
  - Urinary tract infection [Recovered/Resolved]
  - Drug hypersensitivity [Unknown]
  - Eating disorder [Recovered/Resolved]
